FAERS Safety Report 18725636 (Version 1)
Quarter: 2021Q1

REPORT INFORMATION
  Report Type: Spontaneous
  Country: IN (occurrence: IN)
  Receive Date: 20210111
  Receipt Date: 20210111
  Transmission Date: 20210419
  Serious: Yes (Other)
  Sender: FDA-Public Use
  Company Number: IN-MYLANLABS-2021M1000839

PATIENT
  Age: 63 Year
  Sex: Female

DRUGS (3)
  1. ZOLEDRONIC ACID [Suspect]
     Active Substance: ZOLEDRONIC ACID
     Indication: BREAST CANCER
     Dosage: 4 MILLIGRAM 6 MONTH 7 DOSES
     Route: 042
     Dates: start: 2016, end: 2019
  2. ZOLEDRONIC ACID [Suspect]
     Active Substance: ZOLEDRONIC ACID
     Indication: OSTEOPOROSIS
  3. INSULIN [Concomitant]
     Active Substance: INSULIN NOS
     Indication: TYPE 2 DIABETES MELLITUS
     Route: 065

REACTIONS (4)
  - Osteonecrosis of external auditory canal [Recovered/Resolved]
  - Pseudomonas infection [Recovered/Resolved]
  - Otitis media [Recovered/Resolved]
  - Otitis externa [Recovered/Resolved]

NARRATIVE: CASE EVENT DATE: 2019
